FAERS Safety Report 6651116-0 (Version None)
Quarter: 2010Q1

REPORT INFORMATION
  Report Type: 
  Country: None (occurrence: None)
  Receive Date: 20100323
  Receipt Date: 20100310
  Transmission Date: 20100710
  Serious: Yes (Hospitalization)
  Sender: FDA-Public Use
  Company Number: 008561

PATIENT
  Sex: Female
  Weight: 70.3 kg

DRUGS (7)
  1. CIMZIA [Suspect]
     Indication: CROHN'S DISEASE
     Dosage: 400 MG SUBCUTANEOUS
     Route: 058
     Dates: start: 20100304
  2. PREDNISONE TAB [Concomitant]
  3. FUROSEMIDE [Concomitant]
  4. LISINOPRIL [Concomitant]
  5. PENTASA [Concomitant]
  6. ALBUTEROL SULFATE [Concomitant]
  7. POTASSIUM [Concomitant]

REACTIONS (1)
  - ANAPHYLACTIC REACTION [None]
